FAERS Safety Report 8533942-6 (Version None)
Quarter: 2012Q3

REPORT INFORMATION
  Report Type: 
  Country: None (occurrence: None)
  Receive Date: 20120724
  Receipt Date: 20120618
  Transmission Date: 20120928
  Serious: Yes (Hospitalization, Other)
  Sender: FDA-Public Use
  Company Number: BR-ROCHE-1089573

PATIENT
  Age: 49 Year
  Sex: Female

DRUGS (7)
  1. MABTHERA [Suspect]
     Dates: start: 20101201
  2. CHLOROQUINE PHOSPHATE [Concomitant]
  3. MABTHERA [Suspect]
     Indication: RHEUMATOID ARTHRITIS
     Dates: start: 20090201
  4. MABTHERA [Suspect]
     Dates: start: 20091201
  5. METHOTREXATE [Concomitant]
  6. CORTICOSTEROID NOS [Concomitant]
  7. MABTHERA [Suspect]
     Dates: start: 20111201

REACTIONS (3)
  - RHEUMATOID ARTHRITIS [None]
  - ARTHRALGIA [None]
  - ARTHROPATHY [None]
